FAERS Safety Report 13916147 (Version 1)
Quarter: 2017Q3

REPORT INFORMATION
  Report Type: Spontaneous
  Country: US (occurrence: US)
  Receive Date: 20170829
  Receipt Date: 20170829
  Transmission Date: 20171127
  Serious: No
  Sender: FDA-Public Use
  Company Number: US-ENDO PHARMACEUTICALS INC-2017-000712

PATIENT
  Sex: Male

DRUGS (1)
  1. PREDNISONE TABLETS 20MG [Suspect]
     Active Substance: PREDNISONE
     Indication: POLYMYALGIA RHEUMATICA
     Dosage: 20 MG ONE TIME PER DAY
     Route: 065

REACTIONS (7)
  - Muscle spasms [Unknown]
  - Diarrhoea [Unknown]
  - Drug ineffective [Unknown]
  - Hyperhidrosis [Unknown]
  - Chills [Unknown]
  - Pyrexia [Unknown]
  - Abdominal pain [Unknown]
